FAERS Safety Report 8584458-2 (Version None)
Quarter: 2012Q3

REPORT INFORMATION
  Report Type: 
  Country: None (occurrence: None)
  Receive Date: 20120730
  Receipt Date: 20120719
  Transmission Date: 20120928
  Serious: Yes (Other)
  Sender: FDA-Public Use
  Company Number: DKLU1083326

PATIENT
  Age: 19 Year
  Sex: Female

DRUGS (3)
  1. SABRIL [Suspect]
     Indication: GRAND MAL CONVULSION
     Dosage: 1500 MG MILLIGRAM(S), 2 IN 1 D
     Dates: start: 20120703
  2. KLONOPIN [Concomitant]
  3. TRILEPTAL [Concomitant]

REACTIONS (2)
  - AGGRESSION [None]
  - SUICIDAL IDEATION [None]
